FAERS Safety Report 6364966-5 (Version None)
Quarter: 2009Q3

REPORT INFORMATION
  Report Type: 
  Country: None (occurrence: None)
  Receive Date: 20090919
  Receipt Date: 20090806
  Transmission Date: 20100115
  Serious: No
  Sender: FDA-Public Use
  Company Number: US-ABBOTT-09P-163-0589686-00

PATIENT
  Sex: Female
  Weight: 54.48 kg

DRUGS (3)
  1. HUMIRA [Suspect]
     Indication: CROHN'S DISEASE
     Dosage: 1ST DOSE
     Dates: start: 20090204, end: 20090228
  2. HUMIRA [Suspect]
     Dosage: 2ND DOSE
     Dates: start: 20090228, end: 20090304
  3. HUMIRA [Suspect]
     Dates: start: 20090304

REACTIONS (1)
  - INJECTION SITE RASH [None]
